FAERS Safety Report 9725105 (Version 3)
Quarter: 2014Q1

REPORT INFORMATION
  Report Type: Spontaneous
  Country: US (occurrence: US)
  Receive Date: 20131203
  Receipt Date: 20140217
  Transmission Date: 20141002
  Serious: Yes (Hospitalization)
  Sender: FDA-Public Use
  Company Number: US-BIOGENIDEC-2013BI114025

PATIENT
  Age: 57 Year
  Sex: Female

DRUGS (4)
  1. TECFIDERA [Suspect]
     Indication: MULTIPLE SCLEROSIS
     Route: 048
     Dates: start: 20130625
  2. TECFIDERA [Suspect]
     Indication: MULTIPLE SCLEROSIS
     Route: 048
     Dates: start: 20130701
  3. ANTIVERT [Concomitant]
  4. KLONOPIN [Concomitant]

REACTIONS (7)
  - Abdominal distension [Unknown]
  - Diarrhoea [Unknown]
  - Alopecia [Unknown]
  - Multiple sclerosis relapse [Recovered/Resolved]
  - Influenza like illness [Recovered/Resolved]
  - Encephalopathy [Recovered/Resolved]
  - Intervertebral disc protrusion [Recovered/Resolved]
